FAERS Safety Report 9670990 (Version 1)
Quarter: 2013Q4

REPORT INFORMATION
  Report Type: Spontaneous
  Country: US (occurrence: US)
  Receive Date: 20131106
  Receipt Date: 20131106
  Transmission Date: 20140711
  Serious: Yes (Death, Other)
  Sender: FDA-Public Use
  Company Number: US-OTSUKA-US-2013-12016

PATIENT
  Sex: Female

DRUGS (1)
  1. SAMSCA [Suspect]
     Indication: HYPONATRAEMIC SYNDROME
     Dosage: TWICE, 3 DAYS APART
     Dates: start: 2013, end: 2013

REACTIONS (2)
  - Blood sodium increased [Unknown]
  - Adverse event [Fatal]
